FAERS Safety Report 10562376 (Version 2)
Quarter: 2014Q4

REPORT INFORMATION
  Report Type: Spontaneous
  Country: JP (occurrence: None)
  Receive Date: 20141031
  Receipt Date: 20141120
  Transmission Date: 20150529
  Serious: Yes (Hospitalization, Other)
  Sender: FDA-Public Use
  Company Number: JP2014JPN010248

PATIENT
  Age: 51 Year
  Sex: Male

DRUGS (5)
  1. TRUVADA [Suspect]
     Active Substance: EMTRICITABINE\TENOFOVIR DISOPROXIL FUMARATE
     Indication: HIV INFECTION
     Dates: start: 20140616
  2. BAKTAR (SULFAMETHOXAZOLE + TRIMETHOPRIM) [Concomitant]
  3. TIVICAY [Suspect]
     Active Substance: DOLUTEGRAVIR SODIUM
     Indication: HIV INFECTION
     Dates: start: 20140616
  4. ZITHROMAC [Concomitant]
     Active Substance: AZITHROMYCIN DIHYDRATE
  5. SAMTIREL [Concomitant]
     Active Substance: ATOVAQUONE

REACTIONS (5)
  - Immune reconstitution inflammatory syndrome associated Kaposi^s sarcoma [None]
  - Condition aggravated [None]
  - Immune reconstitution inflammatory syndrome [None]
  - Pyrexia [None]
  - Kaposi^s sarcoma [None]

NARRATIVE: CASE EVENT DATE: 20140811
